FAERS Safety Report 16702046 (Version 1)
Quarter: 2019Q3

REPORT INFORMATION
  Report Type: Spontaneous
  Country: US (occurrence: US)
  Receive Date: 20190627
  Receipt Date: 20190627
  Transmission Date: 20191004
  Serious: No
  Sender: FDA-Public Use
  Company Number: None

PATIENT
  Age: 63 Year
  Sex: Male

DRUGS (1)
  1. ENBREL [Suspect]
     Active Substance: ETANERCEPT
     Dates: start: 201805

REACTIONS (3)
  - Product dose omission [None]
  - Therapy cessation [None]
  - Respiratory tract infection [None]

NARRATIVE: CASE EVENT DATE: 20190627
